FAERS Safety Report 5733019-9 (Version None)
Quarter: 2008Q2

REPORT INFORMATION
  Report Type: 
  Country: None (occurrence: None)
  Receive Date: 20080509
  Receipt Date: 20080415
  Transmission Date: 20081010
  Serious: No
  Sender: FDA-Public Use
  Company Number: US-BAYER-200819678NA

PATIENT
  Age: 57 Year
  Sex: Male

DRUGS (7)
  1. LEVITRA [Suspect]
     Indication: ERECTILE DYSFUNCTION
     Dosage: TOTAL DAILY DOSE: 20 MG  UNIT DOSE: 20 MG
     Route: 048
     Dates: start: 20080408, end: 20080408
  2. LEVITRA [Suspect]
     Dosage: TOTAL DAILY DOSE: 20 MG  UNIT DOSE: 20 MG
     Route: 048
     Dates: start: 20080301, end: 20080301
  3. LEVITRA [Suspect]
     Dosage: TOTAL DAILY DOSE: 20 MG  UNIT DOSE: 20 MG
     Route: 048
     Dates: start: 20080323, end: 20080323
  4. LEVITRA [Suspect]
     Route: 048
     Dates: start: 20071101
  5. AVALIDE [Concomitant]
  6. ATENOLOL [Concomitant]
  7. LOPID [Concomitant]

REACTIONS (1)
  - ERECTILE DYSFUNCTION [None]
